FAERS Safety Report 18883335 (Version 1)
Quarter: 2021Q1

REPORT INFORMATION
  Report Type: Spontaneous
  Country: US (occurrence: US)
  Receive Date: 20210211
  Receipt Date: 20210211
  Transmission Date: 20210420
  Serious: No
  Sender: FDA-Public Use
  Company Number: None

PATIENT
  Age: 41 Year
  Sex: Male
  Weight: 128.25 kg

DRUGS (11)
  1. ASPIRIN 81MG [Concomitant]
     Active Substance: ASPIRIN
  2. REPATHA [Suspect]
     Active Substance: EVOLOCUMAB
     Dosage: ?          QUANTITY:1 INJECTION(S);OTHER FREQUENCY:EVERY TWO WEEKS;?
     Route: 058
     Dates: start: 20210210, end: 20210211
  3. ADMELOG [Concomitant]
     Active Substance: INSULIN LISPRO
  4. BASIGLAR [Concomitant]
  5. GABAPENTIN. [Concomitant]
     Active Substance: GABAPENTIN
  6. METFORMIN [Concomitant]
     Active Substance: METFORMIN HYDROCHLORIDE
  7. LISINOPRIL. [Concomitant]
     Active Substance: LISINOPRIL
  8. VITAMIN D3 [Concomitant]
     Active Substance: CHOLECALCIFEROL
  9. ONE A DAY MEN^S VITAMIN [Concomitant]
  10. PROBIOTIC 60 BILLION [Concomitant]
  11. LEVOTHYROXINE. [Concomitant]
     Active Substance: LEVOTHYROXINE

REACTIONS (1)
  - Blood glucose increased [None]

NARRATIVE: CASE EVENT DATE: 20210211
